FAERS Safety Report 22073252 (Version 1)
Quarter: 2023Q1

REPORT INFORMATION
  Report Type: Spontaneous
  Country: US (occurrence: US)
  Receive Date: 20230308
  Receipt Date: 20230308
  Transmission Date: 20230417
  Serious: Yes (Other)
  Sender: FDA-Public Use
  Company Number: US-PROCTER_AND_GAMBLE-GS23024507

PATIENT

DRUGS (1)
  1. SECRET ANTIPERSPIRANT NOS [Suspect]
     Active Substance: ALUMINUM CHLOROHYDRATE OR ALUMINUM ZIRCONIUM TETRACHLOROHYDREX GLY
     Dosage: UNK
     Route: 061

REACTIONS (2)
  - Hodgkin^s disease [Unknown]
  - Lymphadenopathy [Unknown]
